FAERS Safety Report 9125278 (Version 1)
Quarter: 2013Q1

REPORT INFORMATION
  Report Type: Report from Study
  Country: US (occurrence: US)
  Receive Date: 20130121
  Receipt Date: 20130121
  Transmission Date: 20140127
  Serious: Yes (Other)
  Sender: FDA-Public Use
  Company Number: US-ABBOTT-13P-163-1035596-00

PATIENT
  Sex: Female
  Weight: 99.88 kg

DRUGS (14)
  1. HUMIRA [Suspect]
     Indication: RHEUMATOID ARTHRITIS
     Route: 058
     Dates: start: 201009, end: 201103
  2. HUMIRA [Suspect]
     Route: 058
     Dates: start: 20110930, end: 20111101
  3. METHOTREXATE [Suspect]
     Indication: RHEUMATOID ARTHRITIS
     Dates: end: 201101
  4. PERCOCET [Concomitant]
     Indication: BACK PAIN
  5. LYRICA [Concomitant]
     Indication: PAIN
  6. LYRICA [Concomitant]
     Indication: NEUROPATHY PERIPHERAL
  7. ELAVIL [Concomitant]
     Indication: BACK PAIN
     Dosage: AT BEDTIME
  8. FLEXERIL [Concomitant]
     Indication: BACK PAIN
     Dosage: AT BEDTIME
  9. POTASSIUM [Concomitant]
     Indication: MINERAL SUPPLEMENTATION
  10. MAXZIDE [Concomitant]
     Indication: BLOOD CALCIUM DECREASED
  11. VITAMIN D [Concomitant]
     Indication: VITAMIN SUPPLEMENTATION
  12. NORVASC [Concomitant]
     Indication: HYPERTENSION
  13. LODINE XL [Concomitant]
     Indication: PAIN
  14. REQUIP [Concomitant]
     Indication: RESTLESS LEGS SYNDROME

REACTIONS (7)
  - Carcinoid syndrome [Not Recovered/Not Resolved]
  - Hypoaesthesia [Recovered/Resolved]
  - Balance disorder [Not Recovered/Not Resolved]
  - Nuclear magnetic resonance imaging brain abnormal [Unknown]
  - Gastrointestinal disorder [Not Recovered/Not Resolved]
  - Hepatic enzyme increased [Recovered/Resolved]
  - Arthritis [Recovered/Resolved]
